FAERS Safety Report 4427653-6 (Version None)
Quarter: 2004Q3

REPORT INFORMATION
  Report Type: 
  Country: None (occurrence: None)
  Receive Date: 20040812
  Receipt Date: 20040804
  Transmission Date: 20050211
  Serious: Yes (Death)
  Sender: FDA-Public Use
  Company Number: 2004US000781

PATIENT
  Age: 69 Year
  Sex: Male

DRUGS (4)
  1. PROGRAF [Suspect]
     Indication: HEART TRANSPLANT
     Dosage: 2.00 MG, ORAL
     Route: 048
     Dates: start: 20020713
  2. PROGRAF [Suspect]
     Indication: HEART TRANSPLANT
     Dosage: 2.00 MG, ORAL
     Route: 048
     Dates: start: 20030410
  3. RAPAMUNE [Suspect]
  4. SOLU-MEDROL [Concomitant]

REACTIONS (1)
  - MULTI-ORGAN FAILURE [None]
